FAERS Safety Report 6671443-0 (Version None)
Quarter: 2010Q2

REPORT INFORMATION
  Report Type: 
  Country: None (occurrence: None)
  Receive Date: 20100407
  Receipt Date: 20100405
  Transmission Date: 20101027
  Serious: Yes (Death, Hospitalization, Other)
  Sender: FDA-Public Use
  Company Number: US-CELGENEUS-163-21880-09122214

PATIENT
  Sex: Female

DRUGS (16)
  1. REVLIMID [Suspect]
     Indication: MYELODYSPLASTIC SYNDROME
     Route: 048
     Dates: start: 20090901
  2. REVLIMID [Suspect]
     Route: 048
     Dates: start: 20090701
  3. AZACITIDINE [Suspect]
     Indication: MYELODYSPLASTIC SYNDROME
     Route: 065
     Dates: start: 20091106
  4. LASIX [Concomitant]
     Route: 048
     Dates: start: 20091104
  5. SPIRIVA [Concomitant]
     Route: 055
     Dates: start: 20091104
  6. OXYGEN [Concomitant]
     Indication: DRUG USE FOR UNKNOWN INDICATION
     Route: 055
     Dates: start: 20091013
  7. ALBUTEROL SULFATE AUTOHALER [Concomitant]
     Dosage: 5MG/ML
     Route: 055
     Dates: start: 20091104
  8. CYCLOBENZAPRINE HCL [Concomitant]
     Route: 048
     Dates: start: 20091104
  9. EXJADE [Concomitant]
     Indication: DRUG USE FOR UNKNOWN INDICATION
     Route: 048
     Dates: start: 20091104
  10. FLOVENT HFA [Concomitant]
     Indication: DRUG USE FOR UNKNOWN INDICATION
     Dosage: 2 PUFFS
     Route: 055
     Dates: start: 20091104
  11. LEXAPRO [Concomitant]
     Indication: DRUG USE FOR UNKNOWN INDICATION
     Route: 048
     Dates: start: 20091104
  12. PERCOCET [Concomitant]
     Indication: PAIN
     Dosage: 5-325MG
     Route: 048
     Dates: start: 20091104
  13. PHENERGAN [Concomitant]
     Indication: NAUSEA
     Route: 048
     Dates: start: 20091104
  14. PHENERGAN [Concomitant]
     Indication: VOMITING
  15. TRAVATAN [Concomitant]
     Indication: DRUG USE FOR UNKNOWN INDICATION
     Dosage: IN EACH EYE
     Route: 047
     Dates: start: 20091104
  16. ZOFRAN [Concomitant]
     Indication: NAUSEA
     Route: 048
     Dates: start: 20091104

REACTIONS (2)
  - PANCYTOPENIA [None]
  - SEPTIC SHOCK [None]
